FAERS Safety Report 13113170 (Version 1)
Quarter: 2017Q1

REPORT INFORMATION
  Report Type: Spontaneous
  Country: US (occurrence: US)
  Receive Date: 20170112
  Receipt Date: 20170112
  Transmission Date: 20170428
  Serious: No
  Sender: FDA-Public Use
  Company Number: None

PATIENT
  Age: 51 Year
  Sex: Female

DRUGS (1)
  1. IBRANCE [Suspect]
     Active Substance: PALBOCICLIB
     Indication: BREAST CANCER
     Dosage: 100MG DAIL FOR 21 DAYS EVERY 28 DAYS BY MOUTH
     Route: 048
     Dates: start: 20161112

REACTIONS (2)
  - Vomiting [None]
  - White blood cell count decreased [None]

NARRATIVE: CASE EVENT DATE: 20170110
